FAERS Safety Report 8423592-4 (Version None)
Quarter: 2012Q2

REPORT INFORMATION
  Report Type: 
  Country: None (occurrence: None)
  Receive Date: 20120608
  Receipt Date: 20120529
  Transmission Date: 20120825
  Serious: Yes (Hospitalization)
  Sender: FDA-Public Use
  Company Number: US-ABBOTT-12P-163-0940598-00

PATIENT
  Sex: Male

DRUGS (1)
  1. HUMIRA [Suspect]
     Indication: PSORIASIS
     Dates: start: 20120401, end: 20120501

REACTIONS (7)
  - NAUSEA [None]
  - PROSTATIC DISORDER [None]
  - PYREXIA [None]
  - HEADACHE [None]
  - WHITE BLOOD CELL DISORDER [None]
  - EAR INFECTION [None]
  - PROSTATITIS [None]
